FAERS Safety Report 9388043 (Version 1)
Quarter: 2013Q3

REPORT INFORMATION
  Report Type: Spontaneous
  Country: US (occurrence: None)
  Receive Date: 20130701
  Receipt Date: 20130701
  Transmission Date: 20140515
  Serious: Yes (Other)
  Sender: FDA-Public Use
  Company Number: US-1198988

PATIENT
  Age: 62 Year
  Sex: Female

DRUGS (4)
  1. ISOPTO ATROPINE [Suspect]
     Route: 047
     Dates: start: 201305
  2. DORZOLAMIDE [Concomitant]
  3. ALPHAGAN [Concomitant]
  4. LUMIGAN [Concomitant]

REACTIONS (2)
  - Visual impairment [None]
  - Eye pain [None]
